FAERS Safety Report 7745193-3 (Version None)
Quarter: 2011Q3

REPORT INFORMATION
  Report Type: 
  Country: None (occurrence: None)
  Receive Date: 20110907
  Receipt Date: 20110824
  Transmission Date: 20111222
  Serious: Yes (Hospitalization)
  Sender: FDA-Public Use
  Company Number: ACO_26362_2011

PATIENT
  Age: 63 Year
  Sex: Male
  Weight: 97.0698 kg

DRUGS (5)
  1. REQUIP [Concomitant]
  2. REBIF [Concomitant]
  3. NEXIUM [Concomitant]
  4. AMPYRA [Suspect]
     Indication: GAIT DISTURBANCE
     Dosage: 10 MG, BID, ORAL
     Route: 048
     Dates: start: 20100901, end: 20110701
  5. LYRICA [Concomitant]

REACTIONS (4)
  - URINARY TRACT INFECTION [None]
  - PROTEIN URINE PRESENT [None]
  - RENAL PAIN [None]
  - SEPSIS [None]
